FAERS Safety Report 4843536-1 (Version None)
Quarter: 2005Q4

REPORT INFORMATION
  Report Type: 
  Country: None (occurrence: None)
  Receive Date: 20051125
  Receipt Date: 20051114
  Transmission Date: 20060501
  Serious: Yes (Other)
  Sender: FDA-Public Use
  Company Number: HQWYE578416NOV05

PATIENT

DRUGS (1)
  1. EFFEXOR XR [Suspect]
     Dosage: EFFEXOR XR 37.5 MG SPHEROIDS^,

REACTIONS (2)
  - DRUG ABUSER [None]
  - INTENTIONAL DRUG MISUSE [None]
